FAERS Safety Report 6144006-3 (Version None)
Quarter: 2009Q2

REPORT INFORMATION
  Report Type: 
  Country: None (occurrence: None)
  Receive Date: 20090401
  Receipt Date: 20090317
  Transmission Date: 20091009
  Serious: Yes (Death)
  Sender: FDA-Public Use
  Company Number: 2008LY0354

PATIENT
  Sex: Male

DRUGS (6)
  1. ORFADIN [Suspect]
     Indication: TYROSINAEMIA
     Dosage: 1 MG/KG ORAL
     Route: 048
     Dates: start: 20031026, end: 20031217
  2. SODIUM BICARBONATE(SODIUM BICARBONATE)(TABLETS) [Concomitant]
  3. PHOSPHATE SANDOZ (SODIUM PHOSPHATE) (TABLETS) [Concomitant]
  4. VITAMIN D [Concomitant]
  5. ALDACTONE [Concomitant]
  6. VITAMIN K TAB [Concomitant]

REACTIONS (4)
  - HAEMORRHAGIC DIATHESIS [None]
  - HEPATIC FAILURE [None]
  - HEPATIC NEOPLASM MALIGNANT [None]
  - NO THERAPEUTIC RESPONSE [None]
